FAERS Safety Report 7331904-8 (Version None)
Quarter: 2011Q1

REPORT INFORMATION
  Report Type: 
  Country: None (occurrence: None)
  Receive Date: 20110304
  Receipt Date: 20091021
  Transmission Date: 20110831
  Serious: No
  Sender: FDA-Public Use
  Company Number: US-PFIZER INC-2009287774

PATIENT
  Sex: Female
  Weight: 49.895 kg

DRUGS (4)
  1. DILANTIN [Suspect]
     Indication: CONVULSION
     Dosage: 100 MG, 3X/DAY
     Route: 048
     Dates: start: 20091001
  2. MOTRIN [Concomitant]
     Indication: RHEUMATOID ARTHRITIS
     Dosage: 600 MG, 1X/DAY
     Route: 048
  3. METHADONE [Concomitant]
     Indication: RHEUMATOID ARTHRITIS
     Dosage: 50 MG, 1X/DAY
     Route: 048
  4. XANAX [Suspect]
     Indication: ANXIETY
     Dosage: 1 MG, 3X/DAY
     Route: 048

REACTIONS (8)
  - DYSPNOEA [None]
  - VOMITING [None]
  - NERVOUSNESS [None]
  - ANXIETY [None]
  - INSOMNIA [None]
  - DEHYDRATION [None]
  - NAUSEA [None]
  - HEADACHE [None]
